FAERS Safety Report 5092753-7 (Version None)
Quarter: 2006Q3

REPORT INFORMATION
  Report Type: 
  Country: None (occurrence: None)
  Receive Date: 20060825
  Receipt Date: 20060811
  Transmission Date: 20061208
  Serious: Yes (Other)
  Sender: FDA-Public Use
  Company Number: ABNYC-06-0364

PATIENT
  Age: 46 Year
  Sex: Female
  Weight: 54.4316 kg

DRUGS (4)
  1. ABRAXANE [Suspect]
     Indication: BREAST CANCER METASTATIC
     Dosage: 180MG/39 DOSES (100 MG/M2, EVERY WK X 2 WKS, OFF ONE WK, REPEAT), INTRAVENOUS DRIP
     Route: 041
     Dates: start: 20050501, end: 20060703
  2. CYMBALTA [Suspect]
     Indication: DEPRESSION
     Dates: end: 20060701
  3. ZOMETA [Concomitant]
  4. AROMOSIN (EXEMESTANE) [Concomitant]

REACTIONS (3)
  - CARDIOMEGALY [None]
  - CARDIOMYOPATHY [None]
  - EJECTION FRACTION DECREASED [None]
